FAERS Safety Report 8876107 (Version 4)
Quarter: 2013Q4

REPORT INFORMATION
  Report Type: Spontaneous
  Country: FR (occurrence: FR)
  Receive Date: 20121030
  Receipt Date: 20131106
  Transmission Date: 20140711
  Serious: Yes (Life-Threatening, Hospitalization)
  Sender: FDA-Public Use
  Company Number: FR-TEVA-365974ISR

PATIENT
  Age: 76 Year
  Sex: Female
  Weight: 65 kg

DRUGS (10)
  1. AZILECT [Suspect]
     Indication: PARKINSON^S DISEASE
     Dosage: 1 DOSAGE FORMS DAILY;
     Route: 048
     Dates: start: 201111, end: 201205
  2. CITALOPRAM [Interacting]
     Indication: DEPRESSION
     Dosage: 1 DOSAGE FORMS DAILY;
     Route: 048
     Dates: start: 201204, end: 201205
  3. CITALOPRAM [Interacting]
     Indication: PARKINSON^S DISEASE
  4. SINEMET [Concomitant]
     Indication: PARKINSON^S DISEASE
     Dosage: 5 DOSAGE FORMS DAILY; 25/100 LP
     Route: 048
  5. SINEMET [Concomitant]
     Dosage: 1 DOSAGE FORMS DAILY; 10/100 LP
     Route: 048
  6. DOPAMINERGIC AGENTS (UNKNOWN BRAND NAME) [Concomitant]
     Indication: PARKINSON^S DISEASE
  7. SIFROL LP 0.52 [Concomitant]
     Indication: PARKINSON^S DISEASE
     Dosage: 1 DOSAGE FORMS DAILY;
     Route: 048
     Dates: start: 200701, end: 201205
  8. OMEPRAZOLE 20MG [Concomitant]
     Indication: GASTRITIS
     Dosage: 1 DOSAGE FORMS DAILY;
     Route: 048
  9. OMEPRAZOLE 20MG [Concomitant]
     Indication: GASTROOESOPHAGEAL REFLUX DISEASE
  10. SINEMET 10/100 [Concomitant]
     Indication: PARKINSON^S DISEASE
     Dosage: 1 DOSAGE FORMS DAILY;
     Route: 048

REACTIONS (10)
  - Hyperthermia [Recovered/Resolved]
  - Hyperventilation [Recovered/Resolved]
  - Drug interaction [Recovered/Resolved]
  - Convulsion [Recovered/Resolved]
  - Serotonin syndrome [Recovered/Resolved with Sequelae]
  - Confusional state [Recovered/Resolved]
  - Altered state of consciousness [Recovered/Resolved]
  - Status epilepticus [Recovered/Resolved]
  - Bradycardia [Recovered/Resolved]
  - Coma [Recovered/Resolved with Sequelae]
